FAERS Safety Report 10777064 (Version 1)
Quarter: 2015Q1

REPORT INFORMATION
  Report Type: Spontaneous
  Country: US (occurrence: US)
  Receive Date: 20150209
  Receipt Date: 20150209
  Transmission Date: 20150721
  Serious: No
  Sender: FDA-Public Use
  Company Number: US-PFIZER INC-2015049855

PATIENT
  Age: 65 Year
  Sex: Female

DRUGS (3)
  1. ETODOLAC. [Suspect]
     Active Substance: ETODOLAC
     Dosage: UNK
  2. OXAPROZIN. [Suspect]
     Active Substance: OXAPROZIN
     Dosage: UNK
  3. KETOPROFEN. [Suspect]
     Active Substance: KETOPROFEN
     Dosage: UNK

REACTIONS (1)
  - Drug hypersensitivity [Unknown]
